FAERS Safety Report 4715815-X (Version None)
Quarter: 2005Q3

REPORT INFORMATION
  Report Type: 
  Country: None (occurrence: None)
  Receive Date: 20050713
  Receipt Date: 20050628
  Transmission Date: 20060218
  Serious: Yes (Hospitalization)
  Sender: FDA-Public Use
  Company Number: A-US2003-02489

PATIENT
  Age: 37 Year
  Sex: Female
  Weight: 61.2 kg

DRUGS (8)
  1. TRACLEER [Suspect]
     Indication: PULMONARY HYPERTENSION
     Dosage: 125 MG, BID, ORAL
     Route: 048
     Dates: start: 20021001, end: 20050601
  2. TRACLEER [Suspect]
     Indication: PULMONARY HYPERTENSION
     Dosage: 125 MG, BID, ORAL
     Route: 048
     Dates: start: 20020801
  3. FLOLAN [Concomitant]
  4. COUMADIN [Concomitant]
  5. SYNTHROID 9LEVOTHYROXINE SODIUM) [Concomitant]
  6. FUROSEMIDE (FUROSEMIDE0 [Concomitant]
  7. MULTIVITAMINS (THIAMINE HYDROCHLORIDE, RIBOFLAVIN, RETINOL, PANTHENOL, [Concomitant]
  8. FERROUS SULFATE TAB [Concomitant]

REACTIONS (14)
  - ALANINE AMINOTRANSFERASE INCREASED [None]
  - ANAEMIA [None]
  - ASPARTATE AMINOTRANSFERASE INCREASED [None]
  - BLOOD BILIRUBIN INCREASED [None]
  - DIALYSIS [None]
  - HYPOTENSION [None]
  - ILEUS [None]
  - INTERNATIONAL NORMALISED RATIO DECREASED [None]
  - OVARIAN CYST [None]
  - POSTOPERATIVE ADHESION [None]
  - POSTOPERATIVE ILEUS [None]
  - RENAL FAILURE [None]
  - SEPSIS [None]
  - UTERINE LEIOMYOMA [None]
